FAERS Safety Report 4793442-6 (Version None)
Quarter: 2005Q4

REPORT INFORMATION
  Report Type: 
  Country: None (occurrence: None)
  Receive Date: 20051011
  Receipt Date: 20050119
  Transmission Date: 20060501
  Serious: Yes (Other)
  Sender: FDA-Public Use
  Company Number: US-BRISTOL-MYERS SQUIBB COMPANY-12829602

PATIENT
  Age: 82 Year
  Sex: Female
  Weight: 80 kg

DRUGS (5)
  1. GLUCOPHAGE XR [Suspect]
     Indication: DIABETES MELLITUS
     Route: 048
  2. GLUCOTROL [Concomitant]
  3. MONOPRIL [Concomitant]
  4. TOPROL-XL [Concomitant]
  5. COUMADIN [Concomitant]

REACTIONS (1)
  - BLOOD GLUCOSE INCREASED [None]
